FAERS Safety Report 17515407 (Version 1)
Quarter: 2020Q1

REPORT INFORMATION
  Report Type: Spontaneous
  Country: US (occurrence: US)
  Receive Date: 20200309
  Receipt Date: 20200309
  Transmission Date: 20200409
  Serious: No
  Sender: FDA-Public Use
  Company Number: US-CELGENEUS-USA-20200301476

PATIENT
  Sex: Female

DRUGS (7)
  1. THALOMID [Suspect]
     Active Substance: THALIDOMIDE
     Dosage: 300MG-400MG
     Route: 048
     Dates: start: 200108
  2. THALOMID [Suspect]
     Active Substance: THALIDOMIDE
     Dosage: 50MG-100MG
     Route: 048
     Dates: start: 200711
  3. THALOMID [Suspect]
     Active Substance: THALIDOMIDE
     Dosage: 200 MILLIGRAM (BLISTER PACK)
     Route: 048
     Dates: start: 201906
  4. THALOMID [Suspect]
     Active Substance: THALIDOMIDE
     Indication: PLASMA CELL MYELOMA
     Dosage: 200 MILLIGRAM
     Route: 048
     Dates: start: 200108
  5. THALOMID [Suspect]
     Active Substance: THALIDOMIDE
     Dosage: 50MG-150MG
     Route: 048
     Dates: start: 200303
  6. THALOMID [Suspect]
     Active Substance: THALIDOMIDE
     Dosage: 100MG-200MG
     Route: 048
     Dates: start: 200403
  7. THALOMID [Suspect]
     Active Substance: THALIDOMIDE
     Dosage: 200MG-400MG
     Route: 048
     Dates: start: 200112

REACTIONS (1)
  - Musculoskeletal stiffness [Unknown]
